FAERS Safety Report 7556394-1 (Version None)
Quarter: 2011Q2

REPORT INFORMATION
  Report Type: 
  Country: None (occurrence: None)
  Receive Date: 20110620
  Receipt Date: 20110613
  Transmission Date: 20111010
  Serious: Yes (Death)
  Sender: FDA-Public Use
  Company Number: US-US-EMD SERONO, INC.-231608K05USA

PATIENT
  Sex: Female

DRUGS (5)
  1. ADVAIR DISKUS 100/50 [Concomitant]
     Route: 048
     Dates: start: 20041201, end: 20050201
  2. AMANTADINE HCL [Concomitant]
     Route: 048
  3. REBIF [Suspect]
     Indication: MULTIPLE SCLEROSIS
     Route: 058
     Dates: start: 20040827, end: 20050201
  4. COMBIVENT [Concomitant]
  5. METFORMIN HCL [Concomitant]
     Route: 048

REACTIONS (3)
  - PANCREATIC NEOPLASM [None]
  - HEPATIC NEOPLASM [None]
  - GALLBLADDER CANCER [None]
